FAERS Safety Report 10218963 (Version 2)
Quarter: 2014Q3

REPORT INFORMATION
  Report Type: Spontaneous
  Country: IT (occurrence: IT)
  Receive Date: 20140605
  Receipt Date: 20140717
  Transmission Date: 20150326
  Serious: Yes (Other)
  Sender: FDA-Public Use
  Company Number: IT-TEVA-484934ISR

PATIENT
  Age: 42 Year
  Sex: Female

DRUGS (5)
  1. TAVOR [Suspect]
     Active Substance: LORAZEPAM
     Indication: SUICIDE ATTEMPT
     Dosage: 1 DF TOTAL
     Route: 048
     Dates: start: 20140506, end: 20140506
  2. CITALOPRAM [Suspect]
     Active Substance: CITALOPRAM HYDROBROMIDE
     Indication: PERSONALITY DISORDER
     Dosage: 2 DF TOTAL
     Route: 049
     Dates: start: 20140506, end: 20140506
  3. ZYPREXA COMPRESSE RIVESTITE 10 MG [Concomitant]
     Indication: PRODUCT USED FOR UNKNOWN INDICATION
     Dosage: 20 MG
     Route: 048
  4. TRITTICO 100 MG COMPRESSE RIVESTITE CON FILM [Suspect]
     Active Substance: TRAZODONE HYDROCHLORIDE
     Indication: SUICIDE ATTEMPT
     Dosage: 800 MG TOTAL
     Route: 048
     Dates: start: 20140506, end: 20140506
  5. TEGRETOL 200 MG COMPRESSE [Concomitant]
     Indication: PRODUCT USED FOR UNKNOWN INDICATION
     Dosage: 600 MG
     Route: 048

REACTIONS (3)
  - Suicide attempt [Recovered/Resolved]
  - Drug abuse [Recovered/Resolved]
  - Toxicity to various agents [Recovered/Resolved]

NARRATIVE: CASE EVENT DATE: 20140506
